FAERS Safety Report 9702853 (Version 1)
Quarter: 2013Q4

REPORT INFORMATION
  Report Type: Spontaneous
  Country: US (occurrence: None)
  Receive Date: 20131120
  Receipt Date: 20131120
  Transmission Date: 20140711
  Serious: Yes (Other)
  Sender: FDA-Public Use
  Company Number: KAD201311-001504

PATIENT
  Sex: Female

DRUGS (2)
  1. RIBAVIRIN [Suspect]
  2. PEGINTERFERON ALFA [Suspect]

REACTIONS (3)
  - Abortion spontaneous [None]
  - Maternal exposure before pregnancy [None]
  - Exposure via partner [None]
